FAERS Safety Report 24381626 (Version 1)
Quarter: 2024Q4

REPORT INFORMATION
  Report Type: Other
  Country: NL (occurrence: NL)
  Receive Date: 20241001
  Receipt Date: 20241001
  Transmission Date: 20250115
  Serious: Yes (Disabling)
  Sender: GLENMARK
  Company Number: None

PATIENT

DRUGS (2)
  1. ROSUVASTATIN CALCIUM [Suspect]
     Active Substance: ROSUVASTATIN CALCIUM
     Indication: Hypercholesterolaemia
     Dosage: 1 DOSAGE FORM, OD, 1X PER DAG
     Route: 065
     Dates: start: 20231101, end: 20240201
  2. CARBASPIRIN CALCIUM [Concomitant]
     Active Substance: CARBASPIRIN CALCIUM
     Indication: Product used for unknown indication
     Dosage: 100 MILLIGRAM, BRUISTABLET
     Route: 065

REACTIONS (6)
  - Affect lability [Recovered/Resolved]
  - Muscle spasms [Unknown]
  - Memory impairment [Recovered/Resolved]
  - Myalgia [Recovered/Resolved]
  - Osteoarthritis [Recovered/Resolved]
  - Pain [Recovered/Resolved]
